FAERS Safety Report 24420971 (Version 2)
Quarter: 2024Q4

REPORT INFORMATION
  Report Type: Spontaneous
  Country: SE (occurrence: SE)
  Receive Date: 20241010
  Receipt Date: 20241018
  Transmission Date: 20250114
  Serious: No
  Sender: ROCHE
  Company Number: SE-BoehringerIngelheim-2024-BI-029365

PATIENT
  Age: 64 Year
  Sex: Male

DRUGS (8)
  1. ALTEPLASE [Suspect]
     Active Substance: ALTEPLASE
     Indication: Pulmonary embolism
     Dosage: 50 MG WAS GIVEN OVER 2 H
     Route: 040
  2. ALTEPLASE [Suspect]
     Active Substance: ALTEPLASE
     Dosage: FOLLOWED BY AN INFUSION OF 2 MG/KG FOR 24 H
     Route: 042
  3. NITROGLYCERIN [Concomitant]
     Active Substance: NITROGLYCERIN
     Route: 042
  4. HEPARIN [Concomitant]
     Active Substance: HEPARIN SODIUM
     Route: 042
  5. TINZAPARIN [Concomitant]
     Active Substance: TINZAPARIN
     Dosage: 175 ANTI-XA UNITS/KG
  6. CLOPIDOGREL [Concomitant]
     Active Substance: CLOPIDOGREL BISULFATE
  7. MILRINONE [Concomitant]
     Active Substance: MILRINONE
  8. ASPIRIN [Concomitant]
     Active Substance: ASPIRIN

REACTIONS (1)
  - Dysarthria [Recovering/Resolving]
